FAERS Safety Report 23894856 (Version 1)
Quarter: 2024Q2

REPORT INFORMATION
  Report Type: Spontaneous
  Country: US (occurrence: None)
  Receive Date: 20240524
  Receipt Date: 20240524
  Transmission Date: 20240715
  Serious: No
  Sender: FDA-Public Use
  Company Number: US-ROCHE-3385888

PATIENT
  Sex: Female
  Weight: 100.79 kg

DRUGS (11)
  1. ACTEMRA [Suspect]
     Active Substance: TOCILIZUMAB
     Indication: Rheumatoid arthritis
     Route: 058
     Dates: start: 2019, end: 2021
  2. ACTEMRA [Suspect]
     Active Substance: TOCILIZUMAB
  3. ACTEMRA [Suspect]
     Active Substance: TOCILIZUMAB
     Indication: Osteoporosis
     Dosage: STRENGTH: 162 MG/0.9 ML
     Route: 058
     Dates: start: 202302
  4. ACTEMRA [Suspect]
     Active Substance: TOCILIZUMAB
  5. ACTEMRA [Suspect]
     Active Substance: TOCILIZUMAB
     Dosage: TAKE IT EVERY SATURDAY (0.9 ML PER DOSE)
     Route: 058
     Dates: start: 2020
  6. ACTEMRA [Suspect]
     Active Substance: TOCILIZUMAB
  7. CARBIDOPA\LEVODOPA [Concomitant]
     Active Substance: CARBIDOPA\LEVODOPA
     Dosage: 10/100 MG
     Route: 048
     Dates: start: 1998
  8. DILANTIN [Concomitant]
     Active Substance: PHENYTOIN
     Indication: Epilepsy
     Route: 048
  9. FOLIC ACID [Concomitant]
     Active Substance: FOLIC ACID
     Route: 048
     Dates: start: 2020
  10. HYDROCODONE [Concomitant]
     Active Substance: HYDROCODONE
     Indication: Pain
     Dosage: 1 AS NEEDED
     Route: 048
  11. METHOTREXATE SODIUM [Concomitant]
     Active Substance: METHOTREXATE SODIUM
     Dosage: EVERY SUNDAY TAKE SIX 2.5 MG TABLETS
     Route: 048

REACTIONS (6)
  - Occupational exposure to product [Unknown]
  - Device issue [Unknown]
  - Weight decreased [Not Recovered/Not Resolved]
  - Off label use [Unknown]
  - Sneezing [Unknown]
  - Product complaint [Unknown]

NARRATIVE: CASE EVENT DATE: 20230401
